FAERS Safety Report 7664192-3 (Version None)
Quarter: 2011Q3

REPORT INFORMATION
  Report Type: 
  Country: None (occurrence: None)
  Receive Date: 20110806
  Receipt Date: 20110118
  Transmission Date: 20111222
  Serious: No
  Sender: FDA-Public Use
  Company Number: US-ABBOTT-11P-163-0698493-00

PATIENT
  Sex: Female
  Weight: 70.37 kg

DRUGS (5)
  1. BP MEDS [Concomitant]
     Indication: BLOOD PRESSURE
  2. ACID REFLUX MEDS [Concomitant]
     Indication: GASTROOESOPHAGEAL REFLUX DISEASE
  3. NIASPAN [Suspect]
     Indication: LOW DENSITY LIPOPROTEIN INCREASED
     Dosage: AT BEDTIME
  4. ASPIRIN [Concomitant]
     Indication: PRODUCT USED FOR UNKNOWN INDICATION
     Dosage: IN THE MORNING
  5. SIMVASTATIN [Concomitant]
     Indication: PRODUCT USED FOR UNKNOWN INDICATION

REACTIONS (2)
  - PRURITUS [None]
  - FLUSHING [None]
